FAERS Safety Report 5676131-5 (Version None)
Quarter: 2008Q1

REPORT INFORMATION
  Report Type: 
  Country: None (occurrence: None)
  Receive Date: 20080321
  Receipt Date: 20080320
  Transmission Date: 20080703
  Serious: Yes (Hospitalization)
  Sender: FDA-Public Use
  Company Number: DE-WYE-G01108008

PATIENT
  Sex: Male
  Weight: 67 kg

DRUGS (2)
  1. TORISEL [Suspect]
     Indication: METASTATIC RENAL CELL CARCINOMA
     Dosage: APPROXIMATELY 2.5MG OF THE PLANNED 25MG
     Route: 042
     Dates: start: 20080221, end: 20080221
  2. FENISTIL [Concomitant]
     Route: 042
     Dates: start: 20080221, end: 20080221

REACTIONS (1)
  - ANAPHYLACTIC SHOCK [None]
